FAERS Safety Report 23099473 (Version 1)
Quarter: 2023Q4

REPORT INFORMATION
  Report Type: Spontaneous
  Country: US (occurrence: US)
  Receive Date: 20231024
  Receipt Date: 20231024
  Transmission Date: 20240110
  Serious: Yes (Other)
  Sender: FDA-Public Use
  Company Number: US-002147023-NVSC2023US225536

PATIENT

DRUGS (4)
  1. FEMARA [Suspect]
     Active Substance: LETROZOLE
     Indication: Hormone receptor positive breast cancer
     Dosage: UNK
     Route: 065
     Dates: start: 202001
  2. EVEROLIMUS [Suspect]
     Active Substance: EVEROLIMUS
     Indication: Hormone receptor positive breast cancer
     Dosage: UNK
     Route: 065
  3. IBRANCE [Suspect]
     Active Substance: PALBOCICLIB
     Indication: Hormone receptor positive breast cancer
     Dosage: UNK
     Route: 065
     Dates: start: 202001
  4. EXEMESTANE [Suspect]
     Active Substance: EXEMESTANE
     Indication: Hormone receptor positive breast cancer
     Dosage: 1 DOSAGE FORM, QD
     Route: 048

REACTIONS (4)
  - Hormone receptor positive breast cancer [Unknown]
  - Malignant neoplasm progression [Unknown]
  - Musculoskeletal chest pain [Unknown]
  - Arthralgia [Unknown]
